FAERS Safety Report 7494830-X (Version None)
Quarter: 2011Q2

REPORT INFORMATION
  Report Type: 
  Country: None (occurrence: None)
  Receive Date: 20110520
  Receipt Date: 20110408
  Transmission Date: 20111010
  Serious: Yes (Other)
  Sender: FDA-Public Use
  Company Number: B0712204A

PATIENT
  Sex: Male

DRUGS (5)
  1. NORVIR [Suspect]
     Indication: HIV INFECTION
     Route: 048
     Dates: start: 20110208
  2. PREZISTA [Suspect]
     Indication: HIV INFECTION
     Dosage: 600MG TWICE PER DAY
     Route: 048
     Dates: start: 20110208
  3. CELSENTRI [Suspect]
     Indication: HIV INFECTION
     Dosage: 150MG TWICE PER DAY
     Route: 048
     Dates: start: 20110208, end: 20110314
  4. INTELENCE [Suspect]
     Indication: HIV INFECTION
     Dosage: 200MG TWICE PER DAY
     Route: 048
     Dates: start: 20110208
  5. OFLOXACIN [Concomitant]
     Indication: PROSTATITIS
     Dosage: 200MG TWICE PER DAY
     Route: 048
     Dates: start: 20110203, end: 20110217

REACTIONS (7)
  - VOMITING [None]
  - GAMMA-GLUTAMYLTRANSFERASE INCREASED [None]
  - FOOD INTOLERANCE [None]
  - ABDOMINAL PAIN [None]
  - ASPARTATE AMINOTRANSFERASE INCREASED [None]
  - MUSCLE SPASMS [None]
  - NAUSEA [None]
